FAERS Safety Report 10021990 (Version 3)
Quarter: 2014Q1

REPORT INFORMATION
  Report Type: Report from Study
  Country: US (occurrence: US)
  Receive Date: 20140319
  Receipt Date: 20140328
  Transmission Date: 20141002
  Serious: Yes (Death, Hospitalization)
  Sender: FDA-Public Use
  Company Number: US-ACTELION-A-NJ2013-80015

PATIENT
  Age: 42 Year
  Sex: Female

DRUGS (18)
  1. VELETRI [Suspect]
     Indication: PULMONARY ARTERIAL HYPERTENSION
     Dosage: 22 NG/KG, PER MIN
     Route: 042
     Dates: start: 20121214
  2. ADCIRCA [Concomitant]
     Dosage: 40 MG, BID
     Route: 048
  3. MYCOSTATIN [Concomitant]
     Dosage: 100.000 U/ML, UNK
     Route: 048
  4. DELTASONE [Concomitant]
     Dosage: 5 MG, UNK
     Route: 048
  5. TEGRETOL [Concomitant]
     Dosage: 200 MG, UNK
     Route: 048
  6. CELLCEPT [Concomitant]
     Dosage: 500 MG, TID
     Route: 048
  7. LASIX [Concomitant]
     Dosage: 40 MG, UNK
     Route: 048
  8. PROTONIX [Concomitant]
     Dosage: 40 MG, UNK
     Route: 048
  9. NORCO [Concomitant]
     Dosage: UNK
     Route: 048
  10. VENTOLIN HFA [Concomitant]
     Dosage: UNK
     Route: 055
  11. SYMBICORT [Concomitant]
     Dosage: UNK
     Route: 055
  12. ACCUNEB [Concomitant]
     Dosage: UNK
     Route: 055
  13. OXYGEN [Concomitant]
     Dosage: UNK
  14. ALBUTEROL [Concomitant]
     Dosage: 0.63 MG, TID
  15. CALCIUM + VITAMIN D [Concomitant]
  16. VITAMIN D [Concomitant]
  17. OMEPRAZOLE [Concomitant]
     Dosage: 20 MG, UNK
  18. POTASSIUM [Concomitant]
     Dosage: 10 MEQ, UNK

REACTIONS (22)
  - Pulmonary fibrosis [Fatal]
  - Concomitant disease progression [Fatal]
  - Dehydration [Not Recovered/Not Resolved]
  - Confusional state [Unknown]
  - Cardiac failure [Not Recovered/Not Resolved]
  - Hyperhidrosis [Not Recovered/Not Resolved]
  - Dyspnoea [Recovering/Resolving]
  - Acute respiratory failure [Recovering/Resolving]
  - Hypoxia [Recovering/Resolving]
  - Dyspnoea [Not Recovered/Not Resolved]
  - Pulmonary oedema [Recovering/Resolving]
  - Dizziness [Not Recovered/Not Resolved]
  - Orthopnoea [Not Recovered/Not Resolved]
  - Chest pain [Not Recovered/Not Resolved]
  - White blood cell count increased [Not Recovered/Not Resolved]
  - Hypotension [Unknown]
  - Exercise tolerance decreased [Not Recovered/Not Resolved]
  - Urinary tract infection [Not Recovered/Not Resolved]
  - Abdominal pain [Not Recovered/Not Resolved]
  - Dyspnoea exertional [Recovering/Resolving]
  - Oedema peripheral [Not Recovered/Not Resolved]
  - Oxygen saturation decreased [Not Recovered/Not Resolved]
